FAERS Safety Report 5000185-2 (Version None)
Quarter: 2006Q2

REPORT INFORMATION
  Report Type: 
  Country: None (occurrence: None)
  Receive Date: 20060504
  Receipt Date: 20060424
  Transmission Date: 20061013
  Serious: Yes (Disabling)
  Sender: FDA-Public Use
  Company Number: 200610082BBE

PATIENT
  Age: 15 Year
  Sex: Male
  Weight: 50 kg

DRUGS (1)
  1. KOGENATE [Suspect]
     Indication: FACTOR VIII DEFICIENCY
     Dosage: 2000 IU, TOTAL DAILY, INTRAVENOUS
     Route: 042

REACTIONS (3)
  - ABASIA [None]
  - HAEMARTHROSIS [None]
  - PAIN [None]
